FAERS Safety Report 10600182 (Version 2)
Quarter: 2014Q4

REPORT INFORMATION
  Report Type: Report from Study
  Country: CO (occurrence: CO)
  Receive Date: 20141122
  Receipt Date: 20141203
  Transmission Date: 20150529
  Serious: Yes (Death, Life-Threatening, Hospitalization)
  Sender: FDA-Public Use
  Company Number: CO-ROCHE-1492722

PATIENT
  Age: 59 Year
  Sex: Male

DRUGS (1)
  1. XELODA [Suspect]
     Active Substance: CAPECITABINE
     Indication: GASTRIC CANCER
     Route: 048
     Dates: start: 20140814, end: 20141112

REACTIONS (4)
  - Angina pectoris [Recovered/Resolved]
  - Disease progression [Fatal]
  - Anaemia [Recovered/Resolved]
  - Renal failure [Unknown]

NARRATIVE: CASE EVENT DATE: 20141123
